FAERS Safety Report 5547712-4 (Version None)
Quarter: 2007Q4

REPORT INFORMATION
  Report Type: 
  Country: None (occurrence: None)
  Receive Date: 20071128
  Receipt Date: 20070430
  Transmission Date: 20080405
  Serious: Yes (Other)
  Sender: FDA-Public Use
  Company Number: 2007035354

PATIENT
  Sex: Male

DRUGS (3)
  1. LIPITOR [Suspect]
     Indication: BLOOD CHOLESTEROL INCREASED
  2. ZOCOR [Suspect]
  3. VYTORIN [Suspect]
     Dates: start: 20060101, end: 20070303

REACTIONS (2)
  - LIVER FUNCTION TEST ABNORMAL [None]
  - MYALGIA [None]
